FAERS Safety Report 9120968 (Version 2)
Quarter: 2013Q1

REPORT INFORMATION
  Report Type: Report from Study
  Country: US (occurrence: US)
  Receive Date: 20130226
  Receipt Date: 20130306
  Transmission Date: 20140127
  Serious: Yes (Other)
  Sender: FDA-Public Use
  Company Number: US-ABBOTT-13P-163-1053636-00

PATIENT
  Age: 27 Year
  Sex: Female

DRUGS (4)
  1. KALETRA [Suspect]
     Indication: ANTIRETROVIRAL THERAPY
     Dosage: 4 TABLETS DAILY, COURSE 1
     Route: 048
     Dates: start: 20121128
  2. NORVIR [Suspect]
     Indication: ANTIRETROVIRAL THERAPY
     Dosage: 100 MG DAILY, COURSE 1
     Route: 048
     Dates: start: 20130130
  3. COMBIVIR [Suspect]
     Indication: ANTIRETROVIRAL THERAPY
     Dosage: 2 TAB/CAPS DAILY, COURSE 1
     Route: 048
     Dates: start: 20121128
  4. REYATAZ [Suspect]
     Indication: ANTIRETROVIRAL THERAPY
     Dosage: 300 MG DAILY, COURSE 1
     Route: 048
     Dates: start: 20130130

REACTIONS (3)
  - Subchorionic haemorrhage [Unknown]
  - Nausea [Unknown]
  - Dysphagia [Unknown]
